FAERS Safety Report 5740095-6 (Version None)
Quarter: 2008Q2

REPORT INFORMATION
  Report Type: 
  Country: None (occurrence: None)
  Receive Date: 20080513
  Receipt Date: 20080428
  Transmission Date: 20081010
  Serious: Yes (Hospitalization)
  Sender: FDA-Public Use
  Company Number: 2008-00954

PATIENT
  Age: 61 Year
  Sex: Male

DRUGS (8)
  1. VELCADE [Suspect]
     Indication: MULTIPLE MYELOMA
     Dosage: 1 MG/M2,
     Dates: start: 20060724, end: 20060803
  2. DOXORUBICIN HCL [Suspect]
     Indication: MULTIPLE MYELOMA
     Dosage: 40 MG,
     Dates: start: 20060724
  3. DEXAMETHASONE TAB [Suspect]
     Indication: MULTIPLE MYELOMA
     Dosage: 40 MG,
     Dates: start: 20060724
  4. GRANISETRON  HCL [Suspect]
     Dosage: 3 MG, INTRAVENOUS
     Route: 042
     Dates: start: 20060724
  5. ACYCLOVIR [Concomitant]
  6. SULFAMETHOXAZOLE AND TRIMETHOPRIM [Concomitant]
  7. LANSOPRAZOLE [Concomitant]
  8. SODIUM CLODRONATE [Concomitant]

REACTIONS (3)
  - URETERIC OBSTRUCTION [None]
  - URINARY RETENTION [None]
  - URINARY TRACT INFECTION [None]
